FAERS Safety Report 10714657 (Version 1)
Quarter: 2015Q1

REPORT INFORMATION
  Report Type: Report from Study
  Country: US (occurrence: US)
  Receive Date: 20150115
  Receipt Date: 20150115
  Transmission Date: 20150721
  Serious: Yes (Death, Life-Threatening, Hospitalization, Other)
  Sender: FDA-Public Use
  Company Number: US-BRISTOL-MYERS SQUIBB COMPANY-BMS-2014-000689

PATIENT
  Age: 66 Year
  Sex: Male
  Weight: 71.1 kg

DRUGS (13)
  1. PREDNISONE. [Concomitant]
     Active Substance: PREDNISONE
  2. ATENOLOL. [Concomitant]
     Active Substance: ATENOLOL
  3. BIOTIN [Concomitant]
     Active Substance: BIOTIN
  4. LISINOPRIL. [Concomitant]
     Active Substance: LISINOPRIL
  5. ZINC [Concomitant]
     Active Substance: ZINC\ZINC CHLORIDE
  6. SIMVASTATIN. [Concomitant]
     Active Substance: SIMVASTATIN
  7. COQ10                              /00517201/ [Concomitant]
  8. DEMEROL [Concomitant]
     Active Substance: MEPERIDINE HYDROCHLORIDE
  9. BABY ASPIRIN [Concomitant]
     Active Substance: ASPIRIN
  10. NIVOLUMAB [Suspect]
     Active Substance: NIVOLUMAB
     Indication: NON-SMALL CELL LUNG CANCER
     Dosage: 3 MG/KG, UNK
     Route: 042
     Dates: start: 20141121, end: 20141204
  11. FOLIC ACID. [Concomitant]
     Active Substance: FOLIC ACID
  12. GARLIC                             /01570501/ [Concomitant]
  13. FISH OIL [Concomitant]
     Active Substance: FISH OIL

REACTIONS (4)
  - Troponin I increased [Recovered/Resolved]
  - Infusion related reaction [Recovered/Resolved]
  - Pneumonia [Recovered/Resolved]
  - Malignant neoplasm progression [Fatal]

NARRATIVE: CASE EVENT DATE: 20141204
